FAERS Safety Report 10639360 (Version 1)
Quarter: 2014Q4

REPORT INFORMATION
  Report Type: Spontaneous
  Country: JP (occurrence: JP)
  Receive Date: 20141208
  Receipt Date: 20141208
  Transmission Date: 20150529
  Serious: Yes (Other)
  Sender: FDA-Public Use
  Company Number: JP-MYLANLABS-2014M1013200

PATIENT

DRUGS (4)
  1. FENTANYL. [Concomitant]
     Active Substance: FENTANYL
     Dosage: 200 ?G, QH
     Route: 042
  2. OCTREOTIDE [Suspect]
     Active Substance: OCTREOTIDE
     Indication: INTESTINAL OBSTRUCTION
     Dosage: 400 ?G, QH
     Route: 041
  3. OCTREOTIDE [Suspect]
     Active Substance: OCTREOTIDE
     Indication: OFF LABEL USE
  4. SCOPOLAMINE BUTYLBROMIDE [Suspect]
     Active Substance: SCOPOLAMINE
     Dosage: 60 MG, QD
     Route: 065

REACTIONS (2)
  - Dry mouth [Unknown]
  - Portal venous gas [Recovering/Resolving]
